FAERS Safety Report 13962604 (Version 1)
Quarter: 2017Q3

REPORT INFORMATION
  Report Type: Report from Study
  Country: JP (occurrence: JP)
  Receive Date: 20170913
  Receipt Date: 20170913
  Transmission Date: 20171128
  Serious: Yes (Hospitalization)
  Sender: FDA-Public Use
  Company Number: JP-ROCHE-1990423

PATIENT
  Age: 35 Year
  Sex: Female
  Weight: 42.6 kg

DRUGS (2)
  1. RITUXIMAB. [Suspect]
     Active Substance: RITUXIMAB
     Indication: NEUROMYELITIS OPTICA SPECTRUM DISORDER
     Dosage: RITUXIMAB(GENETICAL RECOMBINATION: 10 MG/ML?SUBSEQUENT DOSE: ON 07/APR/2016 (2ND DOSE), 03/MAR/2017
     Route: 042
     Dates: start: 20160324, end: 20160324
  2. PREDONINE [Concomitant]
     Active Substance: PREDNISOLONE
     Route: 048
     Dates: start: 20160516

REACTIONS (1)
  - Eyelid ptosis [Recovered/Resolved]

NARRATIVE: CASE EVENT DATE: 20170606
